FAERS Safety Report 8961007 (Version 1)
Quarter: 2012Q4

REPORT INFORMATION
  Report Type: 
  Country: ID (occurrence: ID)
  Receive Date: 20121213
  Receipt Date: 20121213
  Transmission Date: 20130627
  Serious: Yes (Death, Hospitalization)
  Sender: FDA-Public Use
  Company Number: PHHY2012ID114439

PATIENT
  Age: 60 Year
  Sex: Female

DRUGS (2)
  1. GLIVEC [Suspect]
     Indication: CHRONIC MYELOID LEUKAEMIA
     Dosage: 400 mg, per day (1x4)
     Route: 048
  2. GLIVEC [Suspect]
     Dosage: 300 mg, per day
     Route: 048

REACTIONS (5)
  - Death [Fatal]
  - Haemoglobin decreased [Unknown]
  - Eye haemorrhage [Unknown]
  - Renal disorder [Unknown]
  - Liver disorder [Unknown]
